FAERS Safety Report 7119822-1 (Version None)
Quarter: 2010Q4

REPORT INFORMATION
  Report Type: 
  Country: None (occurrence: None)
  Receive Date: 20101123
  Receipt Date: 20100831
  Transmission Date: 20110411
  Serious: No
  Sender: FDA-Public Use
  Company Number: US-BRISTOL-MYERS SQUIBB COMPANY-15263619

PATIENT

DRUGS (2)
  1. ONGLYZA [Suspect]
  2. ANTIDIABETIC PRODUCT [Concomitant]

REACTIONS (2)
  - GASTRIC DISORDER [None]
  - MALAISE [None]
